APPROVED DRUG PRODUCT: ERYTHROMYCIN
Active Ingredient: ERYTHROMYCIN
Strength: 2%
Dosage Form/Route: SOLUTION;TOPICAL
Application: A064127 | Product #001
Applicant: RENAISSANCE PHARMA US HOLDINGS INC
Approved: Feb 14, 1997 | RLD: No | RS: No | Type: DISCN